FAERS Safety Report 4806845-8 (Version None)
Quarter: 2005Q4

REPORT INFORMATION
  Report Type: 
  Country: None (occurrence: None)
  Receive Date: 20051019
  Receipt Date: 20050927
  Transmission Date: 20060501
  Serious: Yes (Hospitalization)
  Sender: FDA-Public Use
  Company Number: 2005136674

PATIENT
  Sex: Female

DRUGS (5)
  1. AMLODIPINE [Suspect]
     Indication: HYPERTENSION
     Dosage: 1 DOSE FORM (DAILY), ORAL
     Route: 048
     Dates: start: 20050527, end: 20050610
  2. HYDROCHLOROTHIAZIDE [Suspect]
     Indication: HYPERTENSION
     Dosage: 1 DOSE FORM (DAILY), ORAL
     Route: 048
     Dates: start: 20050527, end: 20050609
  3. CLAVULIN (CLAVULANATE POTASSIUM, AMOXICILLIN TRIHYDRATE) [Suspect]
     Indication: BRONCHOPNEUMOPATHY
     Dates: start: 20050518, end: 20050526
  4. ANASTROZOLE (ANASTROZOLE) [Suspect]
     Indication: BREAST CANCER
     Dosage: 1 DOSE FORM (DAILY), ORAL
     Route: 048
     Dates: start: 20050418, end: 20050610
  5. LOVENOX [Suspect]
     Indication: ILL-DEFINED DISORDER
     Dosage: 0.2 ML

REACTIONS (4)
  - BONE MARROW DISORDER [None]
  - HYPERSPLENISM [None]
  - PANCYTOPENIA [None]
  - PORTAL HYPERTENSION [None]
